FAERS Safety Report 9338255 (Version 1)
Quarter: 2013Q2

REPORT INFORMATION
  Report Type: Spontaneous
  Country: US (occurrence: None)
  Receive Date: 20130605
  Receipt Date: 20130605
  Transmission Date: 20140414
  Serious: No
  Sender: FDA-Public Use
  Company Number: None

PATIENT
  Age: 60 Year
  Sex: Female
  Weight: 67.13 kg

DRUGS (1)
  1. DIVALPROEX [Suspect]
     Indication: PAIN
     Dates: start: 201204, end: 201304

REACTIONS (3)
  - Somnambulism [None]
  - Fall [None]
  - Abnormal sleep-related event [None]
